FAERS Safety Report 11054331 (Version 4)
Quarter: 2015Q4

REPORT INFORMATION
  Report Type: Spontaneous
  Country: IT (occurrence: IT)
  Receive Date: 20150422
  Receipt Date: 20151005
  Transmission Date: 20160304
  Serious: Yes (Hospitalization)
  Sender: FDA-Public Use
  Company Number: IT-ROCHE-1566679

PATIENT
  Age: 61 Year
  Sex: Female
  Weight: 77 kg

DRUGS (8)
  1. FUROSEMIDE. [Concomitant]
     Active Substance: FUROSEMIDE
     Route: 048
  2. COPEGUS [Suspect]
     Active Substance: RIBAVIRIN
     Dosage: 3 DIVIDED DOSES
     Route: 048
  3. COPEGUS [Suspect]
     Active Substance: RIBAVIRIN
     Indication: CHRONIC HEPATITIS C
     Dosage: 168 X 200 MG FILM-COATED TABLETS
     Route: 048
     Dates: start: 20150305, end: 20150503
  4. OMEPRAZOLE. [Concomitant]
     Active Substance: OMEPRAZOLE
     Dosage: ON 16/APR/2015 DOSE WAS DOUBLED.
     Route: 065
  5. PARACODINA ORAL DROPS (ITALY) [Concomitant]
  6. SOVALDI [Suspect]
     Active Substance: SOFOSBUVIR
     Indication: CHRONIC HEPATITIS C
     Dosage: BOTTLE (HDPE) - 28 TABLETS
     Route: 048
     Dates: start: 20150305, end: 20150503
  7. CARVEDILOL. [Concomitant]
     Active Substance: CARVEDILOL
     Route: 048
     Dates: end: 20150415
  8. NORMIX [Concomitant]
     Active Substance: RIFAXIMIN

REACTIONS (1)
  - Portal vein thrombosis [Recovering/Resolving]

NARRATIVE: CASE EVENT DATE: 20150415
